FAERS Safety Report 7679694-3 (Version None)
Quarter: 2011Q3

REPORT INFORMATION
  Report Type: 
  Country: None (occurrence: None)
  Receive Date: 20110812
  Receipt Date: 20110808
  Transmission Date: 20111222
  Serious: Yes (Death)
  Sender: FDA-Public Use
  Company Number: JP-PFIZER INC-2011173342

PATIENT
  Age: 58 Year
  Sex: Female
  Weight: 51.2 kg

DRUGS (4)
  1. PROGRAF [Concomitant]
  2. CELECOXIB [Suspect]
     Indication: RHEUMATOID ARTHRITIS
     Dosage: 400 MG DAILY
     Route: 048
     Dates: start: 20080714
  3. FOSAMAX [Concomitant]
  4. RIMATIL [Concomitant]

REACTIONS (1)
  - DEATH [None]
